FAERS Safety Report 6231800-3 (Version None)
Quarter: 2009Q2

REPORT INFORMATION
  Report Type: 
  Country: None (occurrence: None)
  Receive Date: 20090616
  Receipt Date: 20090609
  Transmission Date: 20091009
  Serious: Yes (Hospitalization)
  Sender: FDA-Public Use
  Company Number: PHHY2009MX22999

PATIENT
  Age: 64 Year
  Sex: Male

DRUGS (1)
  1. EXFORGE [Suspect]
     Indication: HYPERTENSION
     Dosage: 2 TABLETS (160/5 MG) PER DAY
     Route: 048
     Dates: start: 20090517, end: 20090519

REACTIONS (2)
  - ASTHENIA [None]
  - GASTROINTESTINAL HAEMORRHAGE [None]
